FAERS Safety Report 8240962-8 (Version None)
Quarter: 2012Q1

REPORT INFORMATION
  Report Type: 
  Country: None (occurrence: None)
  Receive Date: 20120328
  Receipt Date: 20120320
  Transmission Date: 20120608
  Serious: Yes (Hospitalization)
  Sender: FDA-Public Use
  Company Number: DE-ABBOTT-12P-062-0917901-00

PATIENT
  Sex: Female

DRUGS (2)
  1. HUMIRA [Suspect]
     Indication: PRODUCT USED FOR UNKNOWN INDICATION
     Route: 058
     Dates: start: 20070221
  2. CORTISONE ACETATE [Concomitant]
     Indication: RHEUMATOID ARTHRITIS

REACTIONS (2)
  - DIABETES MELLITUS [None]
  - PANCREATITIS [None]
